FAERS Safety Report 8027764-2 (Version None)
Quarter: 2012Q1

REPORT INFORMATION
  Report Type: 
  Country: None (occurrence: None)
  Receive Date: 20120106
  Receipt Date: 20120106
  Transmission Date: 20120608
  Serious: Yes (Life-Threatening, Hospitalization)
  Sender: FDA-Public Use
  Company Number: None

PATIENT
  Age: 62 Year
  Sex: Female
  Weight: 170.09 kg

DRUGS (1)
  1. INDOCIN [Suspect]
     Indication: GOUT
     Route: 048

REACTIONS (1)
  - PULMONARY EMBOLISM [None]
